FAERS Safety Report 9461473 (Version 2)
Quarter: 2013Q3

REPORT INFORMATION
  Report Type: Report from Study
  Country: AR (occurrence: AR)
  Receive Date: 20130816
  Receipt Date: 20130903
  Transmission Date: 20140515
  Serious: Yes (Hospitalization, Other)
  Sender: FDA-Public Use
  Company Number: PHHY2013AR087983

PATIENT
  Age: 77 Year
  Sex: Male

DRUGS (1)
  1. DIOVAN D [Suspect]
     Indication: HYPERTENSION
     Dosage: 1 DF (320 MG VALS AND 12.5 MG HYDR), DAILY
     Route: 048
     Dates: start: 2011

REACTIONS (4)
  - Arrhythmia [Recovered/Resolved]
  - Palpitations [Unknown]
  - Blood pressure increased [Unknown]
  - Malaise [Unknown]
